FAERS Safety Report 6939643-X (Version None)
Quarter: 2010Q3

REPORT INFORMATION
  Report Type: 
  Country: None (occurrence: None)
  Receive Date: 20100825
  Receipt Date: 20100813
  Transmission Date: 20110219
  Serious: Yes (Hospitalization)
  Sender: FDA-Public Use
  Company Number: US-US-EMD SERONO, INC.-7009726

PATIENT
  Sex: Female

DRUGS (5)
  1. REBIF [Suspect]
     Indication: MULTIPLE SCLEROSIS
     Route: 058
     Dates: start: 20021011, end: 20100517
  2. SULFA [Suspect]
     Indication: URINARY TRACT INFECTION
     Dates: start: 20100101, end: 20100101
  3. FENTANYL CITRATE [Concomitant]
     Indication: PAIN
     Dates: start: 20090101
  4. BACLOFEN [Concomitant]
     Indication: MUSCLE SPASTICITY
  5. TIZANIDINE HCL [Concomitant]
     Indication: MUSCLE SPASTICITY

REACTIONS (18)
  - ABDOMINAL PAIN [None]
  - CEREBRAL THROMBOSIS [None]
  - CHOLECYSTECTOMY [None]
  - CONSTIPATION [None]
  - DIARRHOEA [None]
  - DRUG HYPERSENSITIVITY [None]
  - GASTRIC ULCER HAEMORRHAGE [None]
  - HAEMATEMESIS [None]
  - HEADACHE [None]
  - MULTIPLE SCLEROSIS RELAPSE [None]
  - NAUSEA [None]
  - OESOPHAGITIS [None]
  - POST PROCEDURAL HAEMORRHAGE [None]
  - STEVENS-JOHNSON SYNDROME [None]
  - ULCER [None]
  - URINARY TRACT INFECTION [None]
  - VOMITING [None]
  - WEIGHT DECREASED [None]
